FAERS Safety Report 14358359 (Version 3)
Quarter: 2018Q4

REPORT INFORMATION
  Report Type: Spontaneous
  Country: US (occurrence: US)
  Receive Date: 20180105
  Receipt Date: 20181016
  Transmission Date: 20190204
  Serious: No
  Sender: FDA-Public Use
  Company Number: US-SA-2017SA205993

PATIENT
  Age: 62 Year
  Sex: Female
  Weight: 65.77 kg

DRUGS (3)
  1. DUPIXENT [Suspect]
     Active Substance: DUPILUMAB
     Dosage: 300 MG,QOW
     Route: 058
     Dates: start: 201708, end: 20180930
  2. TRIAMCINOLONE [Suspect]
     Active Substance: TRIAMCINOLONE
     Indication: DERMATITIS ATOPIC
     Dosage: UNK UNK,UNK
     Route: 065
  3. DUPIXENT [Suspect]
     Active Substance: DUPILUMAB
     Indication: DERMATITIS ATOPIC
     Dosage: 600 MG, 1X
     Route: 058
     Dates: start: 20170808

REACTIONS (9)
  - Hypersensitivity [Not Recovered/Not Resolved]
  - Pruritus [Unknown]
  - Conjunctivitis [Unknown]
  - Stress [Not Recovered/Not Resolved]
  - Condition aggravated [Unknown]
  - Dry skin [Not Recovered/Not Resolved]
  - Drug effect decreased [Unknown]
  - Dermatitis [Not Recovered/Not Resolved]
  - Weight increased [Unknown]

NARRATIVE: CASE EVENT DATE: 2017
